FAERS Safety Report 23606257 (Version 1)
Quarter: 2024Q1

REPORT INFORMATION
  Report Type: Spontaneous
  Country: US (occurrence: US)
  Receive Date: 20240307
  Receipt Date: 20240307
  Transmission Date: 20240410
  Serious: No
  Sender: FDA-Public Use
  Company Number: US-BAYER-2024A028837

PATIENT
  Age: 37 Year
  Sex: Female

DRUGS (3)
  1. MIRENA [Suspect]
     Active Substance: LEVONORGESTREL
     Indication: Abnormal uterine bleeding
     Dosage: 20?G/DAY
     Route: 015
     Dates: start: 202311
  2. MIRENA [Suspect]
     Active Substance: LEVONORGESTREL
     Indication: Vaginal haemorrhage
  3. HUMIRA [Concomitant]
     Active Substance: ADALIMUMAB

REACTIONS (2)
  - Sinusitis [None]
  - Cough [None]
